FAERS Safety Report 9919930 (Version 1)
Quarter: 2014Q1

REPORT INFORMATION
  Report Type: Report from Study
  Country: CH (occurrence: CH)
  Receive Date: 20140224
  Receipt Date: 20140224
  Transmission Date: 20141002
  Serious: Yes (Life-Threatening)
  Sender: FDA-Public Use
  Company Number: CH-ASTRAZENECA-2014SE11351

PATIENT
  Sex: 0

DRUGS (1)
  1. PROPOFOL [Suspect]
     Indication: SEDATION
     Route: 042

REACTIONS (1)
  - Respiratory failure [Unknown]
